FAERS Safety Report 4577549-4 (Version None)
Quarter: 2005Q1

REPORT INFORMATION
  Report Type: 
  Country: None (occurrence: None)
  Receive Date: 20050208
  Receipt Date: 20050126
  Transmission Date: 20050727
  Serious: Yes (Other)
  Sender: FDA-Public Use
  Company Number: 2004034450

PATIENT
  Age: 61 Year
  Sex: Female

DRUGS (7)
  1. LIPITOR [Suspect]
     Indication: DYSLIPIDAEMIA
     Dosage: 10 MG (10 MG, 1 IN 1 D), ORAL
     Route: 048
     Dates: start: 19980501
  2. ENALAPRIL MALEATE [Concomitant]
  3. ATENOLOL [Concomitant]
  4. PROPATYLNITRATE (PROPATYLNITRATE) [Concomitant]
  5. ACETYLSALICYLIC ACID SRT [Concomitant]
  6. PROPATYLNITRATE             (PROPATYLNITRATE) [Concomitant]
  7. ESTRADIOL [Concomitant]

REACTIONS (15)
  - ANGIOPATHY [None]
  - ANORECTAL DISORDER [None]
  - BENIGN RENAL NEOPLASM [None]
  - BLOOD URINE PRESENT [None]
  - BONE PAIN [None]
  - CARDIAC DISORDER [None]
  - DIVERTICULUM [None]
  - DYSENTERY [None]
  - FLATULENCE [None]
  - GAIT DISTURBANCE [None]
  - GASTROINTESTINAL NEOPLASM [None]
  - HAEMORRHAGE [None]
  - INTESTINAL MASS [None]
  - RENAL PAIN [None]
  - TREATMENT NONCOMPLIANCE [None]
